FAERS Safety Report 4397298-5 (Version None)
Quarter: 2004Q3

REPORT INFORMATION
  Report Type: 
  Country: None (occurrence: None)
  Receive Date: 20040714
  Receipt Date: 20040709
  Transmission Date: 20050211
  Serious: Yes (Death, Life-Threatening, Hospitalization)
  Sender: FDA-Public Use
  Company Number: PHBS2004DE09238

PATIENT
  Age: 59 Year
  Sex: Male

DRUGS (7)
  1. TERBINAFINE HCL [Suspect]
     Indication: FUSARIUM INFECTION
     Dosage: 250 MG, TID
     Route: 048
  2. MEROPENEM [Concomitant]
     Indication: FUSARIUM INFECTION
     Dosage: 1 G, TID
  3. AMPHOTERICIN B [Suspect]
     Indication: FUSARIUM INFECTION
     Dosage: 1 MG/KG, QD
  4. AMPHOTERICIN B [Suspect]
     Dosage: 1.5 MG/KG, QD
  5. VANCOMYCIN [Concomitant]
     Indication: FUSARIUM INFECTION
     Dosage: 1 G, BID
  6. MORPHINE [Concomitant]
     Indication: PAIN
     Dosage: UNK, UNK
  7. AMPHOTERICIN B [Concomitant]
     Dosage: 5 MG/KG, QD
     Route: 042

REACTIONS (14)
  - ACUTE RESPIRATORY FAILURE [None]
  - ALLOGENIC BONE MARROW TRANSPLANTATION THERAPY [None]
  - BLOOD BILIRUBIN INCREASED [None]
  - CEREBRAL HAEMORRHAGE [None]
  - DIALYSIS [None]
  - DISEASE RECURRENCE [None]
  - GRAFT VERSUS HOST DISEASE [None]
  - HEPATOTOXICITY [None]
  - LEUKAEMIA RECURRENT [None]
  - LIFE SUPPORT [None]
  - NEPHROPATHY TOXIC [None]
  - PYREXIA [None]
  - RENAL FAILURE ACUTE [None]
  - SEPTIC SHOCK [None]
